FAERS Safety Report 15041383 (Version 1)
Quarter: 2018Q2

REPORT INFORMATION
  Report Type: Spontaneous
  Country: CA (occurrence: CA)
  Receive Date: 20180621
  Receipt Date: 20180621
  Transmission Date: 20180711
  Serious: Yes (Hospitalization, Other)
  Sender: FDA-Public Use
  Company Number: CA-VISTAPHARM, INC.-VER201806-000705

PATIENT
  Age: 26 Year
  Sex: Male

DRUGS (1)
  1. PHENYTOIN. [Suspect]
     Active Substance: PHENYTOIN
     Indication: PRODUCT USED FOR UNKNOWN INDICATION
     Dosage: UNKNOWN

REACTIONS (5)
  - Conjunctival hyperaemia [Recovered/Resolved]
  - Visual acuity reduced [Recovered/Resolved]
  - Toxic epidermal necrolysis [Unknown]
  - Conjunctival oedema [Recovered/Resolved]
  - Symblepharon [Recovered/Resolved]
